FAERS Safety Report 8623742 (Version 3)
Quarter: 2012Q4

REPORT INFORMATION
  Report Type: 
  Country: US (occurrence: US)
  Receive Date: 20120620
  Receipt Date: 20120918
  Transmission Date: 20130627
  Serious: Yes (Hospitalization, Other)
  Sender: FDA-Public Use
  Company Number: US-INCYTE CORPORATION-2012IN001073

PATIENT
  Age: 64 Year
  Sex: Female
  Weight: 66.49 kg

DRUGS (12)
  1. JAKAFI [Suspect]
     Indication: MYELOFIBROSIS
     Dosage: 15 mg, bid
     Route: 048
     Dates: start: 20120216, end: 20120301
  2. JAKAFI [Suspect]
     Indication: BUDD-CHIARI SYNDROME
     Dosage: 10 mg, bid
     Route: 048
     Dates: start: 20120302, end: 20120308
  3. JAKAFI [Suspect]
     Dosage: 10 mg, bid
     Route: 048
     Dates: start: 20120315, end: 20120530
  4. JAKAFI [Suspect]
     Dosage: 10 mg, bid
     Route: 048
     Dates: start: 20120614
  5. JAKAFI [Suspect]
     Dosage: 15 mg, bid
     Dates: start: 20120629
  6. CALCIUM [Concomitant]
     Dosage: 600 mg, bid
     Route: 048
  7. PRILOSEC [Concomitant]
     Dosage: 20 mg, qd
  8. COUMADIN [Concomitant]
     Dosage: Dose adjusted to INR 2-3
  9. LASIX [Concomitant]
     Indication: FLUID RETENTION
     Dosage: 10 mg, qd
  10. LASIX [Concomitant]
     Dosage: 20 mg, qd
  11. LACTULOSE [Concomitant]
     Dosage: 30 mg, qd
  12. HYDROXYUREA [Concomitant]
     Dosage: 1500 mg, two times per week, 1000 mg on other days
     Dates: start: 200601

REACTIONS (12)
  - Meningitis cryptococcal [Unknown]
  - Hepatic failure [Not Recovered/Not Resolved]
  - Renal failure acute [Recovered/Resolved]
  - Atrial fibrillation [Recovered/Resolved]
  - Toxicity to various agents [Recovered/Resolved]
  - Hypoxia [Unknown]
  - Cardiac murmur [Unknown]
  - Fluid overload [Unknown]
  - Confusional state [Recovered/Resolved]
  - Lethargy [Unknown]
  - Bacteriuria [Unknown]
  - Thrombocytopenia [Not Recovered/Not Resolved]
